FAERS Safety Report 20561886 (Version 1)
Quarter: 2022Q1

REPORT INFORMATION
  Report Type: Spontaneous
  Country: US (occurrence: None)
  Receive Date: 20220306
  Receipt Date: 20220306
  Transmission Date: 20220423
  Serious: Yes (Hospitalization, Other)
  Sender: FDA-Public Use
  Company Number: None

PATIENT
  Age: 51 Year
  Sex: Male
  Weight: 84.15 kg

DRUGS (5)
  1. ALFUZOSIN [Suspect]
     Active Substance: ALFUZOSIN
     Indication: Benign prostatic hyperplasia
     Dosage: OTHER QUANTITY : 1 TABLET(S);?FREQUENCY : AT BEDTIME;?
     Route: 048
     Dates: start: 20220130, end: 20220131
  2. DOXYCYCLINE [Concomitant]
     Active Substance: DOXYCYCLINE
  3. TESTOSTERONE CIPRIONATE [Concomitant]
  4. VIT D [Concomitant]
  5. ZINC [Concomitant]

REACTIONS (4)
  - Amnesia [None]
  - Fall [None]
  - Loss of consciousness [None]
  - Cardio-respiratory arrest [None]

NARRATIVE: CASE EVENT DATE: 20220131
